FAERS Safety Report 23551837 (Version 2)
Quarter: 2024Q4

REPORT INFORMATION
  Report Type: Spontaneous
  Country: GB (occurrence: GB)
  Receive Date: 20240222
  Receipt Date: 20241128
  Transmission Date: 20250115
  Serious: Yes (Other)
  Sender: CELLTRION
  Company Number: GB-CELLTRION INC.-2024GB003913

PATIENT

DRUGS (2)
  1. INFLIXIMAB [Suspect]
     Active Substance: INFLIXIMAB
     Indication: Crohn^s disease
     Dosage: 120 MILLIGRAM
     Route: 058
     Dates: start: 202305, end: 202402
  2. INFLIXIMAB [Suspect]
     Active Substance: INFLIXIMAB
     Indication: Psoriatic arthropathy
     Dosage: 120 MG ON WEEK 1,2,3,4 AND EVERY 2 WEEKS
     Dates: start: 202411

REACTIONS (3)
  - Surgery [Unknown]
  - Intentional dose omission [Unknown]
  - Off label use [Unknown]
